FAERS Safety Report 7597006-0 (Version None)
Quarter: 2011Q3

REPORT INFORMATION
  Report Type: 
  Country: None (occurrence: None)
  Receive Date: 20110708
  Receipt Date: 20110704
  Transmission Date: 20111222
  Serious: Yes (Other)
  Sender: FDA-Public Use
  Company Number: AU-SANOFI-AVENTIS-2011SA042189

PATIENT
  Sex: Female

DRUGS (8)
  1. VENLAFAXINE [Suspect]
     Route: 048
     Dates: start: 20100305, end: 20100305
  2. ETHANOL [Suspect]
     Indication: ALCOHOL USE
     Dosage: 1 BOTTLE.
     Route: 048
     Dates: start: 20100305, end: 20100305
  3. CODEINE [Suspect]
     Route: 065
  4. TEMAZEPAM [Suspect]
     Route: 065
  5. OXAZEPAM [Suspect]
     Route: 065
  6. DIAZEPAM [Suspect]
     Route: 048
     Dates: start: 20100305, end: 20100305
  7. MORPHINE [Suspect]
     Route: 065
  8. ZOLPIDEM [Suspect]
     Route: 048
     Dates: start: 20100305, end: 20100305

REACTIONS (3)
  - ROAD TRAFFIC ACCIDENT [None]
  - OVERDOSE [None]
  - SOMNAMBULISM [None]
